FAERS Safety Report 9019526 (Version 2)
Quarter: 2013Q2

REPORT INFORMATION
  Report Type: Report from Study
  Country: FR (occurrence: FR)
  Receive Date: 20130118
  Receipt Date: 20130419
  Transmission Date: 20140414
  Serious: Yes (Hospitalization)
  Sender: FDA-Public Use
  Company Number: FR-MERCK-1301FRA005736

PATIENT
  Age: 78 Year
  Sex: Female
  Weight: 64 kg

DRUGS (9)
  1. SITAGLIPTIN PHOSPHATE [Suspect]
     Indication: TYPE 2 DIABETES MELLITUS
     Dosage: 100 MG, QD
     Route: 048
     Dates: start: 20100209
  2. STAGID [Concomitant]
     Indication: TYPE 2 DIABETES MELLITUS
     Dosage: 700 MG, BID
     Route: 048
     Dates: start: 20100209, end: 20100518
  3. STAGID [Concomitant]
     Dosage: 700 MG, TID
     Route: 048
     Dates: start: 20100518, end: 20120313
  4. LANTUS [Concomitant]
     Dosage: 54 IU, QD
     Dates: start: 20100209, end: 20100810
  5. LANTUS [Concomitant]
     Dosage: 60 IU, QD
     Dates: start: 20100810, end: 20120903
  6. LANTUS [Concomitant]
     Dosage: 40 IU, QD
     Dates: start: 20120903
  7. METFORMIN [Concomitant]
     Dosage: 1000 MG, QD
     Route: 048
     Dates: start: 20120313, end: 20120724
  8. METFORMIN [Concomitant]
     Dosage: 1000 MG, QD
     Route: 048
     Dates: start: 20120724
  9. KARDEGIC [Concomitant]

REACTIONS (3)
  - Transient ischaemic attack [Recovered/Resolved]
  - Hypoglycaemia [Recovered/Resolved]
  - Drug ineffective [Unknown]
